FAERS Safety Report 23378061 (Version 1)
Quarter: 2024Q1

REPORT INFORMATION
  Report Type: Report from Study
  Country: BY (occurrence: BY)
  Receive Date: 20240108
  Receipt Date: 20240108
  Transmission Date: 20240410
  Serious: Yes (Death, Life-Threatening)
  Sender: FDA-Public Use
  Company Number: BY-MYLANLABS-2024M1001681

PATIENT
  Age: 69 Year
  Sex: Female
  Weight: 75 kg

DRUGS (10)
  1. PRETOMANID [Suspect]
     Active Substance: PRETOMANID
     Indication: Tuberculosis
     Dosage: 200 MILLIGRAM, QD
     Route: 048
     Dates: start: 20220513, end: 20221027
  2. BEDAQUILINE [Suspect]
     Active Substance: BEDAQUILINE
     Indication: Tuberculosis
     Dosage: 200 MILLIGRAM, 3XW (TIW)
     Route: 048
     Dates: start: 20220513, end: 20221027
  3. LINEZOLID [Suspect]
     Active Substance: LINEZOLID
     Indication: Tuberculosis
     Dosage: 600 MILLIGRAM, QD (600 THEN 300 MG)
     Route: 048
     Dates: start: 20220513
  4. LINEZOLID [Suspect]
     Active Substance: LINEZOLID
     Dosage: 300 MILLIGRAM, QD (600 THEN 300 MG)
     Route: 048
  5. MOXIFLOXACIN [Suspect]
     Active Substance: MOXIFLOXACIN
     Indication: Tuberculosis
     Dosage: 400 MILLIGRAM, QD
     Route: 048
     Dates: start: 20220513, end: 20221027
  6. METFORMIN [Concomitant]
     Active Substance: METFORMIN HYDROCHLORIDE
     Indication: Diabetes mellitus
     Dosage: 300 MILLIGRAM, QD
     Route: 065
     Dates: start: 20220513, end: 20230817
  7. GLICLAZIDE [Concomitant]
     Active Substance: GLICLAZIDE
     Indication: Diabetes mellitus
     Dosage: 120 MILLIGRAM, QD
     Route: 065
     Dates: start: 20220513, end: 20230817
  8. ASPIRIN [Concomitant]
     Active Substance: ASPIRIN
     Indication: Myocardial ischaemia
     Dosage: 75 MILLIGRAM, QD
     Route: 065
     Dates: start: 20220513, end: 20230817
  9. TORSEMIDE [Concomitant]
     Active Substance: TORSEMIDE
     Indication: Myocardial ischaemia
     Dosage: 5 MILLIGRAM, QD
     Route: 065
     Dates: start: 20220513, end: 20230817
  10. VALSARTAN [Concomitant]
     Active Substance: VALSARTAN
     Indication: Myocardial ischaemia
     Dosage: 80 MILLIGRAM, QD
     Route: 065
     Dates: start: 20220513, end: 20230817

REACTIONS (1)
  - Acute myocardial infarction [Fatal]

NARRATIVE: CASE EVENT DATE: 20230817
